FAERS Safety Report 6787726-X (Version None)
Quarter: 2010Q2

REPORT INFORMATION
  Report Type: 
  Country: None (occurrence: None)
  Receive Date: 20100623
  Receipt Date: 20071121
  Transmission Date: 20101027
  Serious: Yes (Other)
  Sender: FDA-Public Use
  Company Number: US-PFIZER INC-2007067950

PATIENT
  Sex: Female

DRUGS (6)
  1. DEPO-PROVERA SUSPENSION/INJ [Suspect]
     Indication: CONTRACEPTION
     Dosage: FIRST INJECTION
     Dates: start: 20061103, end: 20061103
  2. DEPO-PROVERA SUSPENSION/INJ [Suspect]
     Dosage: LAST INJECTION
     Dates: start: 20070208, end: 20070208
  3. BENADRYL [Concomitant]
     Dates: start: 20070313, end: 20070313
  4. SUDAFED 12 HOUR [Concomitant]
     Dates: start: 20070313, end: 20070313
  5. ROBITUSSIN-DM [Concomitant]
     Dates: start: 20070313, end: 20070313
  6. PROMETHAZINE HCL [Concomitant]
     Indication: NAUSEA
     Dates: start: 20070505, end: 20070505

REACTIONS (2)
  - DRUG INEFFECTIVE [None]
  - UNINTENDED PREGNANCY [None]
